FAERS Safety Report 6771341-8 (Version None)
Quarter: 2010Q2

REPORT INFORMATION
  Report Type: 
  Country: None (occurrence: None)
  Receive Date: 20100520
  Receipt Date: 20090818
  Transmission Date: 20101027
  Serious: Yes (Other)
  Sender: FDA-Public Use
  Company Number: 2008038311

PATIENT
  Age: 65 Year
  Sex: Female

DRUGS (10)
  1. PROVERA [Suspect]
     Indication: HORMONE THERAPY
     Dosage: 2.5 MG, ORAL
     Route: 048
     Dates: start: 19900101, end: 19991201
  2. PROVERA [Suspect]
     Indication: METRORRHAGIA
     Dosage: 2.5 MG, ORAL
     Route: 048
     Dates: start: 19900101, end: 19991201
  3. PREMARIN [Suspect]
     Indication: ATROPHIC VULVOVAGINITIS
     Dosage: 0.625 MG
     Dates: start: 19860101, end: 19991201
  4. PREMARIN [Suspect]
     Indication: HORMONE REPLACEMENT THERAPY
     Dosage: 0.625 MG
     Dates: start: 19860101, end: 19991201
  5. PREMARIN [Suspect]
     Indication: HOT FLUSH
     Dosage: 0.625 MG
     Dates: start: 19860101, end: 19991201
  6. CYCRIN [Suspect]
     Indication: HORMONE THERAPY
     Dosage: ORAL
     Route: 048
     Dates: start: 19860101, end: 19990701
  7. CYCRIN [Suspect]
     Indication: MYOCARDIAL ISCHAEMIA
     Dosage: ORAL
     Route: 048
     Dates: start: 19860101, end: 19990701
  8. PREMPRO [Suspect]
     Indication: HORMONE REPLACEMENT THERAPY
     Dosage: 0.625/2.5 MG, ORAL
     Route: 048
     Dates: start: 20000101, end: 20020301
  9. LIPITOR [Concomitant]
  10. MONTELUKAST SODIUM [Concomitant]

REACTIONS (1)
  - BREAST CANCER [None]
